FAERS Safety Report 9962939 (Version 2)
Quarter: 2014Q2

REPORT INFORMATION
  Report Type: Spontaneous
  Country: US (occurrence: US)
  Receive Date: 20140305
  Receipt Date: 20140428
  Transmission Date: 20141212
  Serious: No
  Sender: FDA-Public Use
  Company Number: US-TEVA-466694USA

PATIENT
  Age: 22 Year
  Sex: Male

DRUGS (1)
  1. CLARAVIS [Suspect]
     Route: 048
     Dates: start: 20130826, end: 20140204

REACTIONS (1)
  - White blood cell count decreased [Recovered/Resolved]
